FAERS Safety Report 22388971 (Version 1)
Quarter: 2023Q2

REPORT INFORMATION
  Report Type: Spontaneous
  Country: US (occurrence: None)
  Receive Date: 20230530
  Receipt Date: 20230530
  Transmission Date: 20230721
  Serious: No
  Sender: FDA-Public Use
  Company Number: None

PATIENT
  Age: 68 Year
  Sex: Female

DRUGS (1)
  1. AMBRISENTAN [Suspect]
     Active Substance: AMBRISENTAN
     Indication: Pulmonary hypertension
     Dosage: FREQUENCY : DAILY;?
     Route: 048

REACTIONS (9)
  - Synovial cyst [None]
  - Dysstasia [None]
  - Pain [None]
  - Fatigue [None]
  - Chest pain [None]
  - Dizziness [None]
  - Flushing [None]
  - Anxiety [None]
  - Syncope [None]

NARRATIVE: CASE EVENT DATE: 20230530
